FAERS Safety Report 14391552 (Version 5)
Quarter: 2018Q4

REPORT INFORMATION
  Report Type: Report from Study
  Country: CR (occurrence: CR)
  Receive Date: 20180116
  Receipt Date: 20181119
  Transmission Date: 20190204
  Serious: Yes (Life-Threatening, Hospitalization, Other)
  Sender: FDA-Public Use
  Company Number: PHHY2017CR192036

PATIENT
  Age: 55 Year
  Sex: Female

DRUGS (8)
  1. SCAPHO [Suspect]
     Active Substance: SECUKINUMAB
     Indication: PRODUCT USED FOR UNKNOWN INDICATION
     Dosage: UNK MG, UNK
     Route: 065
  2. SCAPHO [Suspect]
     Active Substance: SECUKINUMAB
     Dosage: 150 MG, UNK
     Route: 065
  3. SCAPHO [Suspect]
     Active Substance: SECUKINUMAB
     Dosage: 150 MG, UNK
     Route: 065
     Dates: start: 20181108
  4. ZITROMAX [Concomitant]
     Active Substance: AZITHROMYCIN
     Indication: PRODUCT USED FOR UNKNOWN INDICATION
     Route: 065
  5. NEURONTIN [Concomitant]
     Active Substance: GABAPENTIN
     Indication: PRODUCT USED FOR UNKNOWN INDICATION
     Route: 065
  6. LYRICA [Concomitant]
     Active Substance: PREGABALIN
     Indication: PRODUCT USED FOR UNKNOWN INDICATION
     Route: 065
  7. SCAPHO [Suspect]
     Active Substance: SECUKINUMAB
     Dosage: 150 MG, UNK
     Route: 065
     Dates: start: 20180901, end: 20180901
  8. FENDIL [Concomitant]
     Indication: PRODUCT USED FOR UNKNOWN INDICATION
     Route: 065

REACTIONS (46)
  - Hypoxia [Unknown]
  - Coma [Unknown]
  - Pain in extremity [Unknown]
  - Abdominal discomfort [Unknown]
  - Peripheral swelling [Unknown]
  - Emotional disorder [Unknown]
  - Stress [Unknown]
  - Panic attack [Unknown]
  - Dysgeusia [Unknown]
  - Hypoacusis [Unknown]
  - Osteoarthritis [Unknown]
  - Feeling abnormal [Unknown]
  - Poisoning [Unknown]
  - Depression [Unknown]
  - Ear pain [Unknown]
  - Drug dependence [Unknown]
  - Nausea [Unknown]
  - Aphonia [Unknown]
  - Fatigue [Unknown]
  - Osteopenia [Unknown]
  - Intervertebral disc disorder [Unknown]
  - Decreased interest [Unknown]
  - Posture abnormal [Unknown]
  - Musculoskeletal discomfort [Unknown]
  - Decreased appetite [Unknown]
  - Mouth injury [Unknown]
  - Limb discomfort [Unknown]
  - Back pain [Unknown]
  - Weight increased [Unknown]
  - Paralysis [Unknown]
  - Malaise [Unknown]
  - Laziness [Unknown]
  - Dysphonia [Unknown]
  - Pharyngitis [Unknown]
  - Sacroiliitis [Unknown]
  - Oedema [Unknown]
  - Rheumatic disorder [Unknown]
  - Body temperature increased [Unknown]
  - Sensitivity to weather change [Unknown]
  - Spinal pain [Unknown]
  - Weight bearing difficulty [Unknown]
  - Pain [Unknown]
  - Inflammation [Unknown]
  - Chest discomfort [Unknown]
  - Obesity [Unknown]
  - Drug ineffective [Unknown]
